FAERS Safety Report 9512142 (Version 1)
Quarter: 2013Q1

REPORT INFORMATION
  Report Type: Spontaneous
  Country: US (occurrence: None)
  Receive Date: 20130305
  Receipt Date: 20130305
  Transmission Date: 20140127
  Serious: Yes (Other)
  Sender: FDA-Public Use
  Company Number: 163-21880-12092298

PATIENT
  Age: 90 Year
  Sex: Female

DRUGS (2)
  1. REVLIMID (LENALIDOMIDE) (15 MILLIGRAM, CAPSULES) [Suspect]
     Indication: PLASMA CELL MYELOMA
     Route: 048
     Dates: start: 20120817, end: 20120905
  2. METHIMAZOLE (THIAMAZOLE) (UNKNOWN [Concomitant]

REACTIONS (3)
  - Chills [None]
  - Pain [None]
  - Pyrexia [None]
